FAERS Safety Report 7716580-4 (Version None)
Quarter: 2011Q3

REPORT INFORMATION
  Report Type: 
  Country: None (occurrence: None)
  Receive Date: 20110829
  Receipt Date: 20110822
  Transmission Date: 20111222
  Serious: Yes (Hospitalization)
  Sender: FDA-Public Use
  Company Number: US-BAYER-201035883NA

PATIENT
  Age: 27 Year
  Sex: Female
  Weight: 88.435 kg

DRUGS (8)
  1. NEXIUM [Concomitant]
  2. AMOXICILLIN [Concomitant]
  3. LORTAB [Concomitant]
  4. ALLEGRA [Concomitant]
  5. PHENTERMINE [Concomitant]
     Dosage: 37.5 MG, UNK
  6. YASMIN [Suspect]
     Dosage: UNK
     Route: 048
     Dates: start: 20020101, end: 20031201
  7. FLEXERIL [Concomitant]
     Dosage: 10 MG, UNK
  8. DILAUDID [Concomitant]

REACTIONS (1)
  - DEEP VEIN THROMBOSIS [None]
